FAERS Safety Report 6840249-1 (Version None)
Quarter: 2010Q3

REPORT INFORMATION
  Report Type: 
  Country: None (occurrence: None)
  Receive Date: 20100714
  Receipt Date: 20100707
  Transmission Date: 20110219
  Serious: Yes (Death, Hospitalization)
  Sender: FDA-Public Use
  Company Number: PHHO2010IT09526

PATIENT
  Weight: 60 kg

DRUGS (4)
  1. AFINITOR [Suspect]
     Indication: NEUROENDOCRINE TUMOUR
     Dosage: 10MG/DAY
     Route: 048
     Dates: start: 20100520, end: 20100618
  2. SPASMEX [Concomitant]
  3. TAVANIC [Concomitant]
  4. TRANEX [Concomitant]

REACTIONS (6)
  - ABDOMINAL PAIN [None]
  - ALANINE AMINOTRANSFERASE INCREASED [None]
  - ASPARTATE AMINOTRANSFERASE INCREASED [None]
  - DYSPNOEA [None]
  - FATIGUE [None]
  - PNEUMONIA [None]
